APPROVED DRUG PRODUCT: THEOPHYLLINE 0.16% AND DEXTROSE 5% IN PLASTIC CONTAINER
Active Ingredient: THEOPHYLLINE
Strength: 160MG/100ML
Dosage Form/Route: INJECTABLE;INJECTION
Application: N019826 | Product #003
Applicant: B BRAUN MEDICAL INC
Approved: Aug 14, 1992 | RLD: Yes | RS: No | Type: DISCN